FAERS Safety Report 10404452 (Version 1)
Quarter: 2014Q2

REPORT INFORMATION
  Report Type: Spontaneous
  Country: US (occurrence: None)
  Receive Date: 20140425
  Receipt Date: 20140425
  Transmission Date: 20141212
  Serious: No
  Sender: FDA-Public Use
  Company Number: 1292272

PATIENT
  Age: 50 Year
  Sex: Male

DRUGS (2)
  1. ZELBORAF (VEMURAFENIB) [Suspect]
     Indication: MALIGNANT MELANOMA
     Dosage: 1920 MG (960 MG, 2 IN 1 D), ORAL
     Route: 048
  2. ZELBORAF (VEMURAFENIB) [Suspect]
     Indication: METASTASES TO CENTRAL NERVOUS SYSTEM
     Dosage: 1920 MG (960 MG, 2 IN 1 D), ORAL
     Route: 048

REACTIONS (2)
  - Metastases to central nervous system [None]
  - Disease progression [None]
